FAERS Safety Report 20012943 (Version 9)
Quarter: 2023Q2

REPORT INFORMATION
  Report Type: Report from Study
  Country: IL (occurrence: IL)
  Receive Date: 20211029
  Receipt Date: 20230606
  Transmission Date: 20230722
  Serious: Yes (Hospitalization)
  Sender: FDA-Public Use
  Company Number: IL-KARYOPHARM-2021KPT001337

PATIENT
  Age: 65 Year
  Sex: Male
  Weight: 68.5 kg

DRUGS (22)
  1. SELINEXOR [Suspect]
     Active Substance: SELINEXOR
     Indication: Non-small cell lung cancer
     Dosage: 60 MG, WEEKLY
     Route: 048
     Dates: start: 20210502
  2. SELINEXOR [Suspect]
     Active Substance: SELINEXOR
     Dosage: 40 MG, WEEKLY
     Route: 048
     Dates: start: 20211026
  3. DOCETAXEL [Suspect]
     Active Substance: DOCETAXEL
     Indication: Non-small cell lung cancer
     Dosage: 75 MG/M2, 1X/3 WEEKS
     Route: 042
     Dates: start: 20210502, end: 20210525
  4. DOCETAXEL [Suspect]
     Active Substance: DOCETAXEL
     Dosage: 59.14 MG/M2, 1X/3 WEEKS
     Route: 042
     Dates: start: 20210525, end: 20210824
  5. DOCETAXEL [Suspect]
     Active Substance: DOCETAXEL
     Dosage: 55 MG/M2, 1X/3 WEEKS
     Route: 042
     Dates: start: 20210824, end: 20211005
  6. VITAMIN B12 [Concomitant]
     Active Substance: CYANOCOBALAMIN
     Indication: Prophylaxis
     Dosage: 1200 UG, QD
     Route: 048
     Dates: start: 2020
  7. TRAMADOL [Concomitant]
     Active Substance: TRAMADOL
     Indication: Pulmonary pain
     Dosage: 100 MG, PRN
     Route: 048
     Dates: start: 202001
  8. FOLIC ACID [Concomitant]
     Active Substance: FOLIC ACID
     Indication: Prophylaxis
     Dosage: 5 MG, QD
     Route: 048
     Dates: start: 2019
  9. NALOXONE HYDROCHLORIDE\OXYCODONE HYDROCHLORIDE [Concomitant]
     Active Substance: NALOXONE HYDROCHLORIDE\OXYCODONE HYDROCHLORIDE
     Indication: Pulmonary pain
     Dosage: 10 MG, PRN
     Route: 048
     Dates: start: 202104
  10. METAMIZOLE [Concomitant]
     Active Substance: METAMIZOLE
     Indication: Pulmonary pain
     Dosage: 500 MG, PRN
     Route: 048
     Dates: start: 202103
  11. AZELASTINE [Concomitant]
     Active Substance: AZELASTINE
     Indication: Lacrimation increased
     Dosage: 8 ML
     Route: 047
     Dates: start: 20210318
  12. OLANZAPINE [Concomitant]
     Active Substance: OLANZAPINE
     Indication: Prophylaxis
     Dosage: 5 MG, QD
     Route: 048
     Dates: start: 20210502
  13. OLANZAPINE [Concomitant]
     Active Substance: OLANZAPINE
     Indication: Syncope
     Dosage: 5 MG, SINGLE
     Route: 048
     Dates: start: 20211001, end: 20211003
  14. ONDANSETRON [Concomitant]
     Active Substance: ONDANSETRON
     Indication: Prophylaxis
     Dosage: 8 MG, TID 2-3 DAYS POST DOSING
     Route: 048
     Dates: start: 20210502
  15. DICLOFENAC POTASSIUM [Concomitant]
     Active Substance: DICLOFENAC POTASSIUM
     Indication: Back pain
     Dosage: 1 %, PRN
     Route: 061
     Dates: start: 20210515
  16. DEXAMETHASONE [Concomitant]
     Active Substance: DEXAMETHASONE
     Indication: Prophylaxis
     Dosage: 8 MG, PRN
     Route: 048
     Dates: start: 20210501
  17. FENTANYL TRANSDERMAL SYSTEM [Concomitant]
     Active Substance: FENTANYL
     Indication: Back pain
     Dosage: 25 UG, QD
     Route: 062
     Dates: start: 202108
  18. OMEPRAZOLE [Concomitant]
     Active Substance: OMEPRAZOLE
     Indication: Syncope
     Dosage: 20 MG, SINGLE
     Route: 048
     Dates: start: 20211001, end: 20211003
  19. FEXOFENADINE [Concomitant]
     Active Substance: FEXOFENADINE HYDROCHLORIDE
     Indication: Syncope
     Dosage: 180 MG, SINGLE
     Route: 048
     Dates: start: 20211001, end: 20211003
  20. FEXOFENADINE [Concomitant]
     Active Substance: FEXOFENADINE HYDROCHLORIDE
     Dosage: 180 MG, QD
  21. LEVOTHYROXINE [Concomitant]
     Active Substance: LEVOTHYROXINE
     Dosage: 100 UG, QD
  22. FAMOTIDINE [Concomitant]
     Active Substance: FAMOTIDINE
     Dosage: 40 MG, QD

REACTIONS (1)
  - Orthostatic hypotension [Recovered/Resolved]

NARRATIVE: CASE EVENT DATE: 20211020
